FAERS Safety Report 8593406-0 (Version None)
Quarter: 2012Q3

REPORT INFORMATION
  Report Type: 
  Country: None (occurrence: None)
  Receive Date: 20120814
  Receipt Date: 20120809
  Transmission Date: 20120928
  Serious: Yes (Hospitalization, Other)
  Sender: FDA-Public Use
  Company Number: US-009507513-2011SP026445

PATIENT

DRUGS (5)
  1. MK-8797 [Concomitant]
     Indication: NARCOLEPSY
     Dates: start: 20090612, end: 20090722
  2. VITAMINS (UNSPECIFIED) [Concomitant]
     Indication: PRODUCT USED FOR UNKNOWN INDICATION
     Dates: start: 20090612, end: 20090722
  3. FLUOCINONIDE [Concomitant]
     Indication: SKIN DISORDER
     Dates: start: 20090612, end: 20090722
  4. OMEGA-3-ACID ETHYL ESTERS [Concomitant]
     Indication: PRODUCT USED FOR UNKNOWN INDICATION
     Dates: start: 20090612, end: 20090722
  5. NUVARING [Suspect]
     Indication: HORMONE THERAPY
     Route: 067
     Dates: start: 20090709, end: 20090722

REACTIONS (4)
  - LOBAR PNEUMONIA [None]
  - PULMONARY INFARCTION [None]
  - HYPERCOAGULATION [None]
  - PULMONARY EMBOLISM [None]
